FAERS Safety Report 17279209 (Version 1)
Quarter: 2020Q1

REPORT INFORMATION
  Report Type: Spontaneous
  Country: US (occurrence: US)
  Receive Date: 20200116
  Receipt Date: 20200116
  Transmission Date: 20200409
  Serious: Yes (Death, Disabling, Other)
  Sender: FDA-Public Use
  Company Number: US-SA-2020SA011357

PATIENT
  Sex: Male

DRUGS (1)
  1. GOLD BOND ORIGINAL STRENGTH POWDER [Suspect]
     Active Substance: MENTHOL\ZINC OXIDE

REACTIONS (22)
  - Neoplasm malignant [Unknown]
  - Aortic arteriosclerosis [Unknown]
  - Myocardial fibrosis [Unknown]
  - Depression [Unknown]
  - Anxiety [Unknown]
  - Cardiac failure congestive [Unknown]
  - Sepsis [Unknown]
  - Impaired work ability [Unknown]
  - Metastases to liver [Unknown]
  - Disability [Not Recovered/Not Resolved]
  - Gastrooesophageal reflux disease [Unknown]
  - Mental disorder [Not Recovered/Not Resolved]
  - Pyelonephritis chronic [Unknown]
  - Asbestosis [Unknown]
  - Mesothelioma malignant [Fatal]
  - Hypertension [Unknown]
  - Implantable defibrillator insertion [Unknown]
  - Arteriosclerosis coronary artery [Unknown]
  - Occupational exposure to product [Fatal]
  - Pleural effusion [Unknown]
  - Pain [Unknown]
  - Injury [Not Recovered/Not Resolved]

NARRATIVE: CASE EVENT DATE: 20171017
